FAERS Safety Report 6923669-6 (Version None)
Quarter: 2010Q3

REPORT INFORMATION
  Report Type: 
  Country: None (occurrence: None)
  Receive Date: 20100813
  Receipt Date: 20100805
  Transmission Date: 20110219
  Serious: Yes (Hospitalization, Disabling)
  Sender: FDA-Public Use
  Company Number: B0665512A

PATIENT
  Sex: Female
  Weight: 90 kg

DRUGS (9)
  1. LAMBIPOL [Suspect]
     Indication: BIPOLAR DISORDER
     Dosage: 200MG PER DAY
     Route: 065
     Dates: start: 20091210, end: 20100206
  2. CYMBALTA [Concomitant]
     Indication: BIPOLAR DISORDER
     Dosage: 60MG PER DAY
     Dates: start: 20090101, end: 20100723
  3. ABILIFY [Concomitant]
     Indication: BIPOLAR DISORDER
     Dosage: 30MG PER DAY
     Dates: start: 20080101, end: 20100604
  4. VALIUM [Concomitant]
     Indication: ANXIETY
     Dosage: 40MG PER DAY
     Dates: start: 20080101, end: 20100712
  5. SEROQUEL [Concomitant]
     Indication: BIPOLAR DISORDER
     Dosage: 100MG PER DAY
     Dates: start: 20080101, end: 20100531
  6. LEVOTHYROXINE SODIUM [Concomitant]
     Indication: HYPOTHYROIDISM
     Dates: start: 20080101
  7. PANTOPRAZOLE SODIUM [Concomitant]
     Dosage: 40MG PER DAY
     Dates: start: 20080101
  8. PRAVASTATIN [Concomitant]
     Dates: start: 20080101
  9. TRAZODONE CHLORHYDRATE [Concomitant]
     Indication: INSOMNIA
     Dates: start: 20080101

REACTIONS (5)
  - EXTRAPYRAMIDAL DISORDER [None]
  - GAIT DISTURBANCE [None]
  - MOBILITY DECREASED [None]
  - MOVEMENT DISORDER [None]
  - MUSCLE RIGIDITY [None]
